FAERS Safety Report 8822523 (Version 2)
Quarter: 2012Q4

REPORT INFORMATION
  Report Type: 
  Country: GB (occurrence: GB)
  Receive Date: 20121003
  Receipt Date: 20121018
  Transmission Date: 20130627
  Serious: Yes (Other)
  Sender: FDA-Public Use
  Company Number: GB-PFIZER INC-2012234342

PATIENT
  Age: 75 Year
  Sex: Female

DRUGS (2)
  1. ZYVOX [Suspect]
     Indication: INFECTION
     Dosage: 600 mg, 2x/day
     Dates: start: 20120914
  2. MEROPENEM [Interacting]
     Indication: INFECTION
     Dosage: UNK
     Dates: start: 20120914

REACTIONS (3)
  - Drug interaction [Not Recovered/Not Resolved]
  - Red blood cell count decreased [Not Recovered/Not Resolved]
  - Gastrointestinal haemorrhage [Not Recovered/Not Resolved]
